FAERS Safety Report 8598060-X (Version None)
Quarter: 2012Q3

REPORT INFORMATION
  Report Type: 
  Country: None (occurrence: None)
  Receive Date: 20120816
  Receipt Date: 20120807
  Transmission Date: 20120928
  Serious: Yes (Hospitalization)
  Sender: FDA-Public Use
  Company Number: CA-JNJFOC-20120614175

PATIENT
  Sex: Male
  Weight: 104.5 kg

DRUGS (13)
  1. REMICADE [Suspect]
     Indication: CROHN'S DISEASE
     Dosage: LOADING DOSE THEN 500MG ONCE EVERY 8 WEEKS
     Route: 042
     Dates: start: 20120507
  2. PREDNISONE TAB [Concomitant]
     Route: 048
  3. VITAMIN D [Concomitant]
     Route: 065
  4. ZYLOPRIM [Concomitant]
     Route: 065
  5. SIMVASTATIIN [Concomitant]
     Route: 065
  6. COUMADIN [Concomitant]
     Route: 065
  7. PANTOPRAZOLE [Concomitant]
     Route: 065
  8. PENTASA [Concomitant]
     Route: 065
  9. IRON [Concomitant]
     Route: 065
  10. REMICADE [Suspect]
     Dosage: 3RD INFUSION
     Route: 042
     Dates: start: 20120627, end: 20120807
  11. METOPROLOL TARTRATE [Concomitant]
     Route: 065
  12. RAMIPRIL [Concomitant]
     Route: 065
  13. CALCIUM [Concomitant]
     Route: 065

REACTIONS (1)
  - ILEOSTOMY [None]
